FAERS Safety Report 21363249 (Version 1)
Quarter: 2022Q3

REPORT INFORMATION
  Report Type: Spontaneous
  Country: US (occurrence: None)
  Receive Date: 20220921
  Receipt Date: 20220921
  Transmission Date: 20221026
  Serious: No
  Sender: FDA-Public Use
  Company Number: None

PATIENT
  Age: 72 Year
  Sex: Female
  Weight: 80.69 kg

DRUGS (20)
  1. LENALIDOMIDE [Suspect]
     Active Substance: LENALIDOMIDE
     Indication: Plasma cell myeloma
     Dosage: OTHER FREQUENCY : 21D OF 28 DAYS;?
     Route: 048
  2. ATORVASTATIN [Concomitant]
  3. BACLOFEN [Concomitant]
  4. CARVEDILOL [Concomitant]
     Active Substance: CARVEDILOL
  5. CHOLESTYRAMINE [Concomitant]
  6. CYANOCOBALAMIN [Concomitant]
  7. GABAPENTIN [Concomitant]
  8. GLUCOSAMINE [Concomitant]
  9. LEVOTHYROXINE [Concomitant]
  10. MAGNESIU [Concomitant]
  11. NORCO [Concomitant]
  12. NUEDEXTA [Concomitant]
  13. OMEPRAZOLE [Concomitant]
  14. OXYCODONE [Concomitant]
  15. STIOLTO [Concomitant]
  16. TECFIDERA [Concomitant]
  17. TOPIRAMATE [Concomitant]
  18. TUMERIC [Concomitant]
  19. VENTOLIN [Concomitant]
  20. VITAMIN D [Concomitant]

REACTIONS (2)
  - Therapy interrupted [None]
  - Full blood count [None]
